FAERS Safety Report 9326447 (Version 1)
Quarter: 2013Q2

REPORT INFORMATION
  Report Type: Spontaneous
  Country: US (occurrence: US)
  Receive Date: 20130604
  Receipt Date: 20130604
  Transmission Date: 20140414
  Serious: No
  Sender: FDA-Public Use
  Company Number: US-AMGEN-USASP2013031157

PATIENT
  Age: 63 Year
  Sex: Female

DRUGS (2)
  1. ENBREL [Suspect]
     Indication: RHEUMATOID ARTHRITIS
     Dosage: 50 MG, QWK
     Dates: start: 20130430
  2. METHOTREXATE [Concomitant]
     Dosage: 17.5 MG, QWK
     Route: 048
     Dates: start: 1997

REACTIONS (1)
  - Dizziness [Not Recovered/Not Resolved]
